FAERS Safety Report 9234471 (Version 2)
Quarter: 2013Q2

REPORT INFORMATION
  Report Type: Spontaneous
  Country: US (occurrence: US)
  Receive Date: 20130416
  Receipt Date: 20130416
  Transmission Date: 20140414
  Serious: No
  Sender: FDA-Public Use
  Company Number: US-BANPHARM-20120175

PATIENT
  Age: 69 Year
  Sex: Female
  Weight: 50.79 kg

DRUGS (1)
  1. NAPROXEN SODIUM CAPSULES 220 MG [Suspect]
     Indication: PAIN
     Dosage: 220 MG, BID, PRN,
     Route: 048
     Dates: start: 20120916, end: 20120918

REACTIONS (2)
  - Oral discomfort [Recovered/Resolved]
  - Wrong technique in drug usage process [Recovered/Resolved]
